FAERS Safety Report 5827758-9 (Version None)
Quarter: 2008Q3

REPORT INFORMATION
  Report Type: 
  Country: None (occurrence: None)
  Receive Date: 20080730
  Receipt Date: 20080718
  Transmission Date: 20090109
  Serious: Yes (Other)
  Sender: FDA-Public Use
  Company Number: JP-PFIZER INC-2008060602

PATIENT
  Age: 18 Year
  Sex: Female

DRUGS (2)
  1. ZOLOFT [Suspect]
     Route: 048
  2. HALCION [Suspect]
     Route: 048

REACTIONS (2)
  - INTENTIONAL OVERDOSE [None]
  - RESPIRATORY ARREST [None]
